FAERS Safety Report 9378660 (Version 2)
Quarter: 2013Q4

REPORT INFORMATION
  Report Type: Spontaneous
  Country: FR (occurrence: FR)
  Receive Date: 20130702
  Receipt Date: 20131107
  Transmission Date: 20140711
  Serious: Yes (Hospitalization)
  Sender: FDA-Public Use
  Company Number: FR-ASTRAZENECA-2012SE89892

PATIENT
  Age: 669 Month
  Sex: Female

DRUGS (7)
  1. INEXIUM [Suspect]
     Route: 048
     Dates: start: 2009, end: 20120307
  2. DIAMICRON [Concomitant]
     Indication: DIABETES MELLITUS
     Route: 048
     Dates: start: 201112, end: 20111220
  3. PROZAC [Concomitant]
     Indication: DEPRESSION
     Route: 048
     Dates: end: 20111217
  4. LOXEN [Concomitant]
     Indication: HYPERTENSION
     Route: 048
  5. LEVOTHYROX [Concomitant]
     Indication: HYPOTHYROIDISM
     Route: 048
  6. LIPANTHYL [Concomitant]
     Indication: DYSLIPIDAEMIA
     Route: 048
  7. METFORMINE [Concomitant]
     Indication: DIABETES MELLITUS
     Route: 048
     Dates: start: 201112, end: 20111220

REACTIONS (2)
  - Diabetes mellitus [Unknown]
  - Hypomagnesaemia [Unknown]
